FAERS Safety Report 7541343-2 (Version None)
Quarter: 2011Q2

REPORT INFORMATION
  Report Type: 
  Country: None (occurrence: None)
  Receive Date: 20110612
  Receipt Date: 20110607
  Transmission Date: 20111010
  Serious: Yes (Other)
  Sender: FDA-Public Use
  Company Number: KR-AMGEN-KORSP2011028854

PATIENT
  Sex: Female

DRUGS (1)
  1. ENBREL [Suspect]
     Indication: PRODUCT USED FOR UNKNOWN INDICATION
     Dosage: 50 MG, 12 DOSES GIVEN

REACTIONS (8)
  - DIZZINESS [None]
  - DRY EYE [None]
  - EYE ALLERGY [None]
  - CONTUSION [None]
  - DRY SKIN [None]
  - RHEUMATOID ARTHRITIS [None]
  - INFLAMMATION [None]
  - RASH [None]
